FAERS Safety Report 19867153 (Version 1)
Quarter: 2021Q3

REPORT INFORMATION
  Report Type: Spontaneous
  Country: US (occurrence: US)
  Receive Date: 20210921
  Receipt Date: 20210921
  Transmission Date: 20211014
  Serious: No
  Sender: FDA-Public Use
  Company Number: US-BRAINTREE LABORATORIES, INC.-2021BTE00012

PATIENT
  Age: 65 Year
  Sex: Female
  Weight: 84.35 kg

DRUGS (9)
  1. VITAMINS [Concomitant]
     Active Substance: VITAMINS
  2. UNSPECIFIED MEDICATIONS [Concomitant]
     Active Substance: UNSPECIFIED INGREDIENT
  3. RYBELSUS [Concomitant]
     Active Substance: SEMAGLUTIDE
  4. METFORMIN [Concomitant]
     Active Substance: METFORMIN HYDROCHLORIDE
  5. TRESIBA [Concomitant]
     Active Substance: INSULIN DEGLUDEC
  6. BABY ASPIRIN [Concomitant]
     Active Substance: ASPIRIN
  7. SUPREP BOWEL PREP [Suspect]
     Active Substance: MAGNESIUM SULFATE\POTASSIUM SULFATE\SODIUM SULFATE
     Indication: COLONOSCOPY
     Dosage: { 1.5 X 6 OZ. BOTTLE, 1X
     Route: 048
     Dates: start: 20210106, end: 20210106
  8. LOSARTAN. [Concomitant]
     Active Substance: LOSARTAN
  9. VASCEPA [Concomitant]
     Active Substance: ICOSAPENT ETHYL

REACTIONS (1)
  - Blood glucose decreased [Recovered/Resolved]

NARRATIVE: CASE EVENT DATE: 20210106
